FAERS Safety Report 8696455 (Version 21)
Quarter: 2016Q3

REPORT INFORMATION
  Report Type: Report from Study
  Country: CA (occurrence: CA)
  Receive Date: 20120801
  Receipt Date: 20160906
  Transmission Date: 20161109
  Serious: Yes (Hospitalization, Other)
  Sender: FDA-Public Use
  Company Number: PHHY2012CA034898

PATIENT
  Age: 78 Year
  Sex: Female

DRUGS (8)
  1. SOMAVERT [Concomitant]
     Active Substance: PEGVISOMANT
     Indication: PRODUCT USED FOR UNKNOWN INDICATION
     Route: 065
  2. AVAPRO [Concomitant]
     Active Substance: IRBESARTAN
     Indication: PRODUCT USED FOR UNKNOWN INDICATION
     Route: 065
  3. VENTOLIN [Concomitant]
     Active Substance: ALBUTEROL SULFATE
     Indication: PRODUCT USED FOR UNKNOWN INDICATION
     Route: 065
  4. SANDOSTATIN LAR DEPOT [Suspect]
     Active Substance: OCTREOTIDE ACETATE
     Indication: ACROMEGALY
     Dosage: 30 MG, TIW EVERY 3 WEEKS
     Route: 030
     Dates: start: 19921002
  5. CELEBREX [Concomitant]
     Active Substance: CELECOXIB
     Indication: ARTHRALGIA
     Route: 065
  6. INDAPAMIDE. [Concomitant]
     Active Substance: INDAPAMIDE
     Indication: PRODUCT USED FOR UNKNOWN INDICATION
     Route: 065
  7. APO-DILTIAZEM [Concomitant]
     Indication: CARDIAC DISORDER
     Route: 065
  8. SYMBICORT [Concomitant]
     Active Substance: BUDESONIDE\FORMOTEROL FUMARATE DIHYDRATE
     Indication: PRODUCT USED FOR UNKNOWN INDICATION
     Route: 065

REACTIONS (32)
  - Joint injury [Unknown]
  - Contusion [Unknown]
  - Musculoskeletal pain [Unknown]
  - Blood pressure increased [Unknown]
  - Joint effusion [Unknown]
  - Arthritis [Recovering/Resolving]
  - Hypertension [Unknown]
  - Blood potassium decreased [Unknown]
  - Dyspnoea [Unknown]
  - Inappropriate schedule of drug administration [Unknown]
  - Feeding disorder [Unknown]
  - Gout [Recovering/Resolving]
  - Injection site mass [Unknown]
  - Malaise [Unknown]
  - Injection site pain [Unknown]
  - Urinary tract infection [Unknown]
  - Arthralgia [Not Recovered/Not Resolved]
  - Pallor [Unknown]
  - Blood pressure diastolic decreased [Unknown]
  - Chest discomfort [Unknown]
  - Joint swelling [Unknown]
  - Cough [Unknown]
  - General physical health deterioration [Unknown]
  - Headache [Unknown]
  - Abdominal pain [Unknown]
  - Balance disorder [Unknown]
  - Asthenia [Unknown]
  - Vomiting [Unknown]
  - Haemoglobin decreased [Unknown]
  - Fall [Unknown]
  - Blood pressure systolic increased [Unknown]
  - Gait disturbance [Unknown]

NARRATIVE: CASE EVENT DATE: 20120410
